FAERS Safety Report 16895665 (Version 1)
Quarter: 2019Q4

REPORT INFORMATION
  Report Type: Report from Study
  Country: US (occurrence: US)
  Receive Date: 20191008
  Receipt Date: 20191008
  Transmission Date: 20200122
  Serious: Yes (Death, Other)
  Sender: FDA-Public Use
  Company Number: US-ARIAD-2017US007555

PATIENT
  Sex: Male

DRUGS (5)
  1. PONATINIB [Suspect]
     Active Substance: PONATINIB
     Dosage: 15 MG, UNK
     Route: 048
  2. PONATINIB [Suspect]
     Active Substance: PONATINIB
     Dosage: 30 MILLIGRAM, QD
     Route: 048
     Dates: start: 20190312
  3. PONATINIB [Suspect]
     Active Substance: PONATINIB
     Dosage: 15 MILLIGRAM, QD
     Route: 048
     Dates: start: 20190402, end: 20190424
  4. PONATINIB [Suspect]
     Active Substance: PONATINIB
     Indication: CHRONIC MYELOID LEUKAEMIA
     Dosage: 15 MG, QD
     Route: 048
     Dates: start: 20140911
  5. PONATINIB [Suspect]
     Active Substance: PONATINIB
     Dosage: 30 MG, QD
     Route: 048

REACTIONS (12)
  - Rectal discharge [Unknown]
  - Product dose omission [Not Recovered/Not Resolved]
  - Vertigo [Unknown]
  - Death [Fatal]
  - Gastrointestinal haemorrhage [Unknown]
  - Dyspepsia [Unknown]
  - Pain in extremity [Unknown]
  - Chest discomfort [Unknown]
  - Impaired quality of life [Unknown]
  - Abdominal pain [Unknown]
  - Otorrhoea [Unknown]
  - Organic erectile dysfunction [Unknown]
